FAERS Safety Report 5607663-3 (Version None)
Quarter: 2008Q1

REPORT INFORMATION
  Report Type: 
  Country: None (occurrence: None)
  Receive Date: 20080128
  Receipt Date: 20080128
  Transmission Date: 20080703
  Serious: Yes (Hospitalization, Other)
  Sender: FDA-Public Use
  Company Number: None

PATIENT
  Age: 47 Year
  Sex: Female
  Weight: 65.7716 kg

DRUGS (1)
  1. PROCHLORPERAZINE [Suspect]
     Indication: NAUSEA
     Dosage: WITH PAIN MEDS PO
     Route: 048
     Dates: start: 20071204, end: 20071206

REACTIONS (6)
  - ANXIETY [None]
  - DYSKINESIA [None]
  - JAW DISORDER [None]
  - LOSS OF CONTROL OF LEGS [None]
  - RESTLESSNESS [None]
  - SUICIDAL IDEATION [None]
